FAERS Safety Report 5615201-4 (Version None)
Quarter: 2008Q1

REPORT INFORMATION
  Report Type: 
  Country: None (occurrence: None)
  Receive Date: 20080204
  Receipt Date: 20080204
  Transmission Date: 20080703
  Serious: Yes (Life-Threatening, Hospitalization)
  Sender: FDA-Public Use
  Company Number: None

PATIENT
  Age: 75 Year
  Sex: Male

DRUGS (2)
  1. LISINOPRIL [Suspect]
     Indication: HYPERTENSION
     Dosage: 10MG EVERY DAY PO
     Route: 048
     Dates: start: 19940721, end: 20071205
  2. ASPIRIN [Suspect]
     Indication: TRANSIENT ISCHAEMIC ATTACK
     Dosage: 81MG EVERY DAY PO
     Route: 048
     Dates: start: 19921231, end: 20071209

REACTIONS (4)
  - ANGIOEDEMA [None]
  - BLOOD CREATININE INCREASED [None]
  - PNEUMONIA [None]
  - RESPIRATORY DEPRESSION [None]
